FAERS Safety Report 6924986-6 (Version None)
Quarter: 2010Q3

REPORT INFORMATION
  Report Type: 
  Country: None (occurrence: None)
  Receive Date: 20100816
  Receipt Date: 20100812
  Transmission Date: 20110219
  Serious: Yes (Death, Hospitalization)
  Sender: FDA-Public Use
  Company Number: US-JNJFOC-20090800813

PATIENT
  Sex: Female
  Weight: 78.47 kg

DRUGS (17)
  1. FLEXERIL [Suspect]
     Indication: PAIN
     Dosage: UNKNOWN
  2. CARDIZEM CD [Suspect]
     Indication: HYPERTENSION
  3. CARDIZEM CD [Suspect]
  4. CARDIZEM CD [Suspect]
     Indication: PRODUCT USED FOR UNKNOWN INDICATION
  5. CARDIZEM CD [Suspect]
  6. TAZAC [Concomitant]
  7. BUSPIRONE HCL [Concomitant]
     Indication: ANXIETY
  8. BUSPIRONE HCL [Concomitant]
     Indication: DEPRESSION
  9. GEODON [Concomitant]
     Indication: BIPOLAR DISORDER
  10. LEXAPRO [Concomitant]
     Indication: DEPRESSION
  11. VISTARIL [Concomitant]
     Indication: ANXIETY
  12. SINGULAIR [Concomitant]
     Indication: ASTHMA
  13. KEPPRA [Concomitant]
     Indication: CONVULSION
  14. IMITREX [Concomitant]
  15. VALIUM [Concomitant]
  16. CELEBREX [Concomitant]
  17. AMBIEN [Concomitant]

REACTIONS (2)
  - COMPLETED SUICIDE [None]
  - INTENTIONAL OVERDOSE [None]
